FAERS Safety Report 10748771 (Version 1)
Quarter: 2015Q1

REPORT INFORMATION
  Report Type: Spontaneous
  Country: DE (occurrence: DE)
  Receive Date: 20150129
  Receipt Date: 20150129
  Transmission Date: 20150721
  Serious: Yes (Other)
  Sender: FDA-Public Use
  Company Number: DE-ACTAVIS-2015-00987

PATIENT
  Age: 77 Year
  Sex: Male

DRUGS (1)
  1. KENTERA (WATSON LABORATORIES) [Suspect]
     Active Substance: OXYBUTYNIN
     Indication: PRODUCT USED FOR UNKNOWN INDICATION
     Dosage: UNK UNK, 2/WEEK
     Route: 062

REACTIONS (1)
  - Blood pressure increased [Unknown]
